FAERS Safety Report 16310598 (Version 2)
Quarter: 2019Q3

REPORT INFORMATION
  Report Type: Spontaneous
  Country: US (occurrence: US)
  Receive Date: 20190514
  Receipt Date: 20190808
  Transmission Date: 20191004
  Serious: Yes (Other)
  Sender: FDA-Public Use
  Company Number: US-ASTRAZENECA-2019SE10297

PATIENT
  Sex: Female

DRUGS (47)
  1. FENTANYL. [Concomitant]
     Active Substance: FENTANYL
  2. MOMETASONE [Concomitant]
     Active Substance: MOMETASONE
  3. MONTELUKAST [Concomitant]
     Active Substance: MONTELUKAST SODIUM
  4. OXYCODONE [Concomitant]
     Active Substance: OXYCODONE
  5. NEXIUM [Suspect]
     Active Substance: ESOMEPRAZOLE MAGNESIUM
     Indication: GASTROOESOPHAGEAL REFLUX DISEASE
     Dosage: FOR VARIOUS DATES AND YEARS PRIOR TO AND/OR INCLUDING THE DATE(S).
     Route: 048
  6. FLUCONAZOLE. [Concomitant]
     Active Substance: FLUCONAZOLE
  7. ONDANSETRON [Concomitant]
     Active Substance: ONDANSETRON
  8. DEXILANT [Suspect]
     Active Substance: DEXLANSOPRAZOLE
     Indication: GASTROOESOPHAGEAL REFLUX DISEASE
     Dosage: 60.0MG UNKNOWN
     Route: 065
     Dates: start: 2013, end: 2015
  9. LYRICA [Concomitant]
     Active Substance: PREGABALIN
  10. SAVELLA [Concomitant]
     Active Substance: MILNACIPRAN HYDROCHLORIDE
  11. ADVAIR DISKUS [Concomitant]
     Active Substance: FLUTICASONE PROPIONATE\SALMETEROL XINAFOATE
  12. CETIRIZINE [Concomitant]
     Active Substance: CETIRIZINE HYDROCHLORIDE
  13. CLOPIDOGREL [Concomitant]
     Active Substance: CLOPIDOGREL BISULFATE
  14. DIAZEPAM. [Concomitant]
     Active Substance: DIAZEPAM
  15. ESTRADIOL. [Concomitant]
     Active Substance: ESTRADIOL
  16. FUROSEMIDE. [Concomitant]
     Active Substance: FUROSEMIDE
  17. HYDROXYZINE PAMOATE. [Concomitant]
     Active Substance: HYDROXYZINE PAMOATE
  18. METRONIDAZOLE. [Concomitant]
     Active Substance: METRONIDAZOLE
  19. MIDODRINE [Concomitant]
     Active Substance: MIDODRINE
  20. PROMETHAZINE [Concomitant]
     Active Substance: PROMETHAZINE HYDROCHLORIDE
  21. VENTOLIN [Concomitant]
     Active Substance: ALBUTEROL SULFATE
  22. INDOMETACIN [Concomitant]
     Active Substance: INDOMETHACIN
  23. LOPERAMIDE [Concomitant]
     Active Substance: LOPERAMIDE
  24. METOCLOPRAMIDE. [Concomitant]
     Active Substance: METOCLOPRAMIDE
  25. TAMSULOSIN [Concomitant]
     Active Substance: TAMSULOSIN
  26. VANCOMYCIN [Concomitant]
     Active Substance: VANCOMYCIN
  27. DEXILANT [Suspect]
     Active Substance: DEXLANSOPRAZOLE
     Indication: GASTROOESOPHAGEAL REFLUX DISEASE
     Dosage: FOR VARIOUS DATES AND YEARS PRIOR TO AND/OR INCLUDING THE DATE(S)
     Route: 065
  28. BACLOFEN. [Concomitant]
     Active Substance: BACLOFEN
  29. ERYTHROMYCIN. [Concomitant]
     Active Substance: ERYTHROMYCIN
  30. ESCITALOPRAM [Concomitant]
     Active Substance: ESCITALOPRAM OXALATE
  31. IBUPROFEN. [Concomitant]
     Active Substance: IBUPROFEN
  32. LEVOFLOXACIN. [Concomitant]
     Active Substance: LEVOFLOXACIN
  33. TRAMADOL. [Concomitant]
     Active Substance: TRAMADOL
  34. FLUTICASONE. [Concomitant]
     Active Substance: FLUTICASONE
  35. LEVOFLOXACIN. [Concomitant]
     Active Substance: LEVOFLOXACIN
  36. ALPRAZOLAM. [Concomitant]
     Active Substance: ALPRAZOLAM
  37. CIPROFLOXACIN. [Concomitant]
     Active Substance: CIPROFLOXACIN
  38. NYSTATIN. [Concomitant]
     Active Substance: NYSTATIN
  39. LORAZEPAM. [Concomitant]
     Active Substance: LORAZEPAM
  40. AZELASTINE. [Concomitant]
     Active Substance: AZELASTINE HYDROCHLORIDE
  41. LINZESS [Concomitant]
     Active Substance: LINACLOTIDE
  42. LORAZEPAM. [Concomitant]
     Active Substance: LORAZEPAM
  43. SERTRALINE [Concomitant]
     Active Substance: SERTRALINE HYDROCHLORIDE
  44. NEXIUM [Suspect]
     Active Substance: ESOMEPRAZOLE MAGNESIUM
     Indication: GASTROOESOPHAGEAL REFLUX DISEASE
     Dosage: 40.0MG UNKNOWN
     Route: 048
     Dates: start: 2012, end: 2014
  45. AMITIZA [Concomitant]
     Active Substance: LUBIPROSTONE
  46. MISOPROSTOL. [Concomitant]
     Active Substance: MISOPROSTOL
  47. PRIMIDONE. [Concomitant]
     Active Substance: PRIMIDONE

REACTIONS (5)
  - Acute kidney injury [Not Recovered/Not Resolved]
  - Renal tubular necrosis [Not Recovered/Not Resolved]
  - Rebound acid hypersecretion [Unknown]
  - Renal failure [Unknown]
  - Chronic kidney disease [Not Recovered/Not Resolved]
